FAERS Safety Report 7308506-2 (Version None)
Quarter: 2011Q1

REPORT INFORMATION
  Report Type: 
  Country: None (occurrence: None)
  Receive Date: 20110223
  Receipt Date: 20101228
  Transmission Date: 20110831
  Serious: Yes (Hospitalization)
  Sender: FDA-Public Use
  Company Number: US-BAYER-201030647NA

PATIENT
  Sex: Female
  Weight: 97 kg

DRUGS (4)
  1. NAPROSYN [Concomitant]
     Dosage: UNK
     Dates: start: 20060513
  2. YASMIN [Suspect]
     Indication: PRODUCT USED FOR UNKNOWN INDICATION
     Route: 048
     Dates: start: 20050301
  3. ORTHO TRI-CYCLEN [Concomitant]
  4. XOPENEX [Concomitant]
     Dosage: UNK UNK, TID
     Route: 045

REACTIONS (7)
  - VOMITING [None]
  - CHOLELITHIASIS [None]
  - NAUSEA [None]
  - CHOLECYSTITIS ACUTE [None]
  - ABDOMINAL TENDERNESS [None]
  - DYSPNOEA [None]
  - FOOD INTOLERANCE [None]
